FAERS Safety Report 5618696-5 (Version None)
Quarter: 2008Q1

REPORT INFORMATION
  Report Type: 
  Country: None (occurrence: None)
  Receive Date: 20080207
  Receipt Date: 20080204
  Transmission Date: 20080703
  Serious: Yes (Other)
  Sender: FDA-Public Use
  Company Number: US-ASTRAZENECA-2008UW02380

PATIENT
  Sex: Female

DRUGS (4)
  1. PRILOSEC [Suspect]
     Indication: GASTROOESOPHAGEAL REFLUX DISEASE
     Route: 048
     Dates: start: 19990101
  2. PLAVIX [Concomitant]
  3. ASPIRIN [Concomitant]
  4. LANOXIN [Concomitant]

REACTIONS (1)
  - MYOCARDIAL INFARCTION [None]
